FAERS Safety Report 8267141-2 (Version None)
Quarter: 2012Q2

REPORT INFORMATION
  Report Type: 
  Country: None (occurrence: None)
  Receive Date: 20120409
  Receipt Date: 20120329
  Transmission Date: 20120825
  Serious: Yes (Other)
  Sender: FDA-Public Use
  Company Number: US-BAYER-2012-031040

PATIENT
  Age: 31 Year
  Sex: Female

DRUGS (2)
  1. DROSPIRENONE AND ETHINYL ESTRADIOL [Suspect]
     Dosage: UNK
     Dates: start: 20100630, end: 20110101
  2. YAZ [Suspect]
     Dosage: UNK
     Dates: start: 20081018, end: 20100630

REACTIONS (1)
  - GALLBLADDER INJURY [None]
